FAERS Safety Report 17992776 (Version 1)
Quarter: 2020Q3

REPORT INFORMATION
  Report Type: Spontaneous
  Country: JP (occurrence: JP)
  Receive Date: 20200708
  Receipt Date: 20200708
  Transmission Date: 20201103
  Serious: Yes (Other)
  Sender: FDA-Public Use
  Company Number: JP-VISTAPHARM, INC.-VER202006-001153

PATIENT
  Age: 74 Year
  Sex: Female

DRUGS (7)
  1. HYDROCODONE AND ACETAMINOPHEN [Suspect]
     Active Substance: ACETAMINOPHEN\HYDROCODONE
     Indication: PAIN IN EXTREMITY
     Dosage: UNKNOWN
  2. PAZOPANIB [Suspect]
     Active Substance: PAZOPANIB
     Dosage: 400 MG/DAY
  3. PACLITAXEL. [Concomitant]
     Active Substance: PACLITAXEL
     Indication: STEWART-TREVES SYNDROME
     Dosage: 80 MG/ME2
  4. DOCETAXEL. [Concomitant]
     Active Substance: DOCETAXEL
     Indication: STEWART-TREVES SYNDROME
     Dosage: 25 MG/ME2 BIWEEKLY
  5. ASPIRIN. [Suspect]
     Active Substance: ASPIRIN
     Indication: CEREBROVASCULAR ACCIDENT
     Dosage: UNKNOWN
  6. PAZOPANIB [Suspect]
     Active Substance: PAZOPANIB
     Indication: STEWART-TREVES SYNDROME
     Dosage: 600 MG/DAY
  7. PAZOPANIB [Suspect]
     Active Substance: PAZOPANIB
     Dosage: 200 MG/DAY

REACTIONS (3)
  - Gastrointestinal haemorrhage [Unknown]
  - Cerebral infarction [Unknown]
  - Hypovolaemic shock [Unknown]
